FAERS Safety Report 8075862-X (Version None)
Quarter: 2012Q1

REPORT INFORMATION
  Report Type: 
  Country: None (occurrence: None)
  Receive Date: 20120127
  Receipt Date: 20120123
  Transmission Date: 20120608
  Serious: No
  Sender: FDA-Public Use
  Company Number: US-PFIZER INC-2012018670

PATIENT
  Sex: Female
  Weight: 104.31 kg

DRUGS (4)
  1. PREDNISONE [Concomitant]
     Dosage: 10 MG, DAILY
  2. LYRICA [Suspect]
     Indication: FIBROMYALGIA
     Dosage: 300 MG, DAILY
  3. KLONOPIN [Concomitant]
     Dosage: 6 MG, DAILY
  4. DILANTIN-125 [Suspect]
     Indication: CEREBRAL SARCOIDOSIS
     Dosage: 200 MG, 2X/DAY

REACTIONS (3)
  - RESPIRATORY TRACT CONGESTION [None]
  - COUGH [None]
  - SNEEZING [None]
